FAERS Safety Report 16186800 (Version 2)
Quarter: 2019Q2

REPORT INFORMATION
  Report Type: Spontaneous
  Country: DE (occurrence: DE)
  Receive Date: 20190411
  Receipt Date: 20190506
  Transmission Date: 20190711
  Serious: Yes (Life-Threatening, Hospitalization, Disabling, Other)
  Sender: FDA-Public Use
  Company Number: PHHY2019DE082490

PATIENT
  Age: 56 Year
  Sex: Female

DRUGS (2)
  1. SECUKINUMAB. [Suspect]
     Active Substance: SECUKINUMAB
     Indication: PSORIASIS
     Dosage: 300 MG, UNK
     Route: 058
     Dates: start: 201811, end: 201901
  2. OXACILLIN [Concomitant]
     Active Substance: OXACILLIN SODIUM
     Indication: ABSCESS LIMB
     Dosage: 3 G, QD (EVERY DAYS)
     Route: 048
     Dates: start: 20190103, end: 20190117

REACTIONS (2)
  - Intestinal perforation [Not Recovered/Not Resolved]
  - Colitis [Not Recovered/Not Resolved]

NARRATIVE: CASE EVENT DATE: 20190117
